FAERS Safety Report 8466472-0 (Version None)
Quarter: 2012Q2

REPORT INFORMATION
  Report Type: 
  Country: None (occurrence: None)
  Receive Date: 20120626
  Receipt Date: 20120622
  Transmission Date: 20120825
  Serious: Yes (Congenital Anomaly, Other)
  Sender: FDA-Public Use
  Company Number: GXKR2012DE002052

PATIENT

DRUGS (3)
  1. SEROQUEL [Suspect]
     Dosage: MATERNAL DOSE: 200 MG/D
     Route: 064
  2. VENLAFAXINE HCL [Suspect]
     Dosage: MATERNAL DOSE: 150 MG/D
     Route: 064
  3. LITHIUM CARBONATE [Suspect]
     Dosage: MATERNAL DOSE: 2X450 MG/D
     Route: 064

REACTIONS (4)
  - ATRIAL SEPTAL DEFECT [None]
  - RESPIRATORY FAILURE [None]
  - AGITATION NEONATAL [None]
  - FOETAL EXPOSURE DURING PREGNANCY [None]
